FAERS Safety Report 7816426-X (Version None)
Quarter: 2011Q4

REPORT INFORMATION
  Report Type: 
  Country: None (occurrence: None)
  Receive Date: 20111017
  Receipt Date: 20111003
  Transmission Date: 20120403
  Serious: Yes (Other)
  Sender: FDA-Public Use
  Company Number: AT-JNJFOC-20111000812

PATIENT
  Age: 40 Year
  Sex: Male

DRUGS (6)
  1. ABILIFY [Suspect]
     Indication: PRODUCT USED FOR UNKNOWN INDICATION
     Route: 042
     Dates: start: 20110408, end: 20110413
  2. LORAZEPAM [Concomitant]
     Route: 042
  3. HALDOL [Suspect]
     Indication: PRODUCT USED FOR UNKNOWN INDICATION
     Route: 030
  4. DOMINAL [Suspect]
     Indication: PRODUCT USED FOR UNKNOWN INDICATION
     Route: 042
  5. VALPROIC ACID [Concomitant]
     Route: 042
  6. DALTEPARIN SODIUM [Concomitant]
     Dosage: 5000IE
     Route: 058

REACTIONS (1)
  - DYSPHAGIA [None]
